FAERS Safety Report 8270062-2 (Version None)
Quarter: 2012Q1

REPORT INFORMATION
  Report Type: 
  Country: None (occurrence: None)
  Receive Date: 20120327
  Receipt Date: 20090821
  Transmission Date: 20120608
  Serious: Yes (Hospitalization)
  Sender: FDA-Public Use
  Company Number: PHEH2009US09748

PATIENT
  Sex: Male

DRUGS (25)
  1. VICODIN [Concomitant]
  2. VITAMIN B12 [Concomitant]
  3. COMBIVENT /GFR/ (IPRATROPIIUM BROMIDE, SALBUTAMOL SULFATE) [Concomitant]
  4. ADVAIR HFA [Concomitant]
  5. OXYCONTIN [Concomitant]
  6. VYTORIN [Concomitant]
  7. FUROSEMIDE [Concomitant]
  8. LISINOPRIL [Concomitant]
  9. POTASSIUM CHLORIDE [Concomitant]
  10. LEVAQUIN [Concomitant]
  11. DOCUSATE SODIUM (DOCUSATE SODIUM) [Concomitant]
  12. ACYCLOVIR [Concomitant]
  13. NITROQUICK (GLYCERYL TRINITRATE) [Concomitant]
  14. LEUCOVORIN CALCIUM [Concomitant]
  15. CETIRIZINE HYDROCHLORIDE [Concomitant]
  16. IPRATROPIUM BROMIDE [Concomitant]
  17. LORAZEPAM [Concomitant]
  18. CARVEDILOL [Concomitant]
  19. ALBUTEROL SULFATE [Concomitant]
  20. DIGOXIN [Concomitant]
  21. GLEEVEC [Suspect]
     Dosage: 400 MG,
     Dates: start: 20080301, end: 20090701
  22. GLEEVEC [Suspect]
     Dosage: 400 MG,
     Dates: start: 20090701, end: 20090801
  23. GLEEVEC [Suspect]
     Dosage: 400 MG,
     Dates: start: 20090801
  24. SPRYCEL [Suspect]
  25. ASPIRIN [Concomitant]

REACTIONS (3)
  - PNEUMONIA [None]
  - PULMONARY OEDEMA [None]
  - DYSPNOEA [None]
